FAERS Safety Report 13113090 (Version 2)
Quarter: 2017Q1

REPORT INFORMATION
  Report Type: Report from Study
  Country: CA (occurrence: CA)
  Receive Date: 20170113
  Receipt Date: 20170216
  Transmission Date: 20170428
  Serious: Yes (Other)
  Sender: FDA-Public Use
  Company Number: CA-JNJFOC-20161206247

PATIENT
  Age: 17 Year
  Sex: Female
  Weight: 49 kg

DRUGS (10)
  1. REMICADE [Suspect]
     Active Substance: INFLIXIMAB
     Indication: COLITIS ULCERATIVE
     Route: 042
     Dates: start: 20170105
  2. PARIET [Concomitant]
     Active Substance: RABEPRAZOLE SODIUM
     Route: 065
  3. CIPRALEX [Concomitant]
     Active Substance: ESCITALOPRAM OXALATE
     Route: 065
  4. REMICADE [Suspect]
     Active Substance: INFLIXIMAB
     Indication: COLITIS ULCERATIVE
     Route: 042
     Dates: start: 20161206
  5. REMICADE [Suspect]
     Active Substance: INFLIXIMAB
     Indication: COLITIS ULCERATIVE
     Dosage: 300 MG
     Route: 042
     Dates: start: 20160705
  6. ZANTAC [Concomitant]
     Active Substance: RANITIDINE HYDROCHLORIDE
     Route: 065
  7. IMURAN [Concomitant]
     Active Substance: AZATHIOPRINE
     Route: 065
  8. REMICADE [Suspect]
     Active Substance: INFLIXIMAB
     Indication: COLITIS ULCERATIVE
     Dosage: 7TH INFUSION
     Route: 042
     Dates: start: 20170209
  9. REMICADE [Suspect]
     Active Substance: INFLIXIMAB
     Indication: COLITIS ULCERATIVE
     Route: 042
  10. VITAMIN D [Concomitant]
     Active Substance: CHOLECALCIFEROL
     Route: 065

REACTIONS (8)
  - General physical health deterioration [Not Recovered/Not Resolved]
  - Product use issue [Unknown]
  - Inflammation [Unknown]
  - Drug level below therapeutic [Unknown]
  - Off label use [Unknown]
  - Colitis ulcerative [Recovering/Resolving]
  - Viral infection [Unknown]
  - Oropharyngeal pain [Unknown]

NARRATIVE: CASE EVENT DATE: 201611
